FAERS Safety Report 11622377 (Version 1)
Quarter: 2015Q4

REPORT INFORMATION
  Report Type: Spontaneous
  Country: US (occurrence: US)
  Receive Date: 20151013
  Receipt Date: 20151013
  Transmission Date: 20160304
  Serious: No
  Sender: FDA-Public Use
  Company Number: US-JNJFOC-20150811859

PATIENT
  Age: 20 Year
  Sex: Female
  Weight: 74.84 kg

DRUGS (4)
  1. TYLENOL [Suspect]
     Active Substance: ACETAMINOPHEN
     Indication: MALAISE
     Route: 065
     Dates: start: 20150730
  2. REMICADE [Concomitant]
     Active Substance: INFLIXIMAB
     Indication: RHEUMATOID ARTHRITIS
     Route: 042
     Dates: start: 20150729
  3. TYLENOL [Suspect]
     Active Substance: ACETAMINOPHEN
     Indication: MIGRAINE
     Route: 065
     Dates: start: 20150730
  4. SUMATRAN [Concomitant]
     Indication: MIGRAINE
     Route: 065
     Dates: start: 20150729

REACTIONS (3)
  - Drug ineffective for unapproved indication [Unknown]
  - Product use issue [Unknown]
  - Headache [Unknown]

NARRATIVE: CASE EVENT DATE: 20150730
